FAERS Safety Report 10436617 (Version 1)
Quarter: 2014Q3

REPORT INFORMATION
  Report Type: Spontaneous
  Country: FR (occurrence: None)
  Receive Date: 20140904
  Receipt Date: 20140904
  Transmission Date: 20150326
  Serious: Yes (Hospitalization, Other)
  Sender: FDA-Public Use
  Company Number: ADR-2014-01576

PATIENT
  Age: 78 Year
  Sex: Female

DRUGS (6)
  1. LIORESAL [Suspect]
     Active Substance: BACLOFEN
     Route: 048
  2. LAROXYL [Suspect]
     Active Substance: AMITRIPTYLINE
     Route: 048
  3. TEMESTA [Suspect]
     Active Substance: LORAZEPAM
     Route: 048
  4. TEGRETOL [Suspect]
     Active Substance: CARBAMAZEPINE
     Route: 048
  5. EUPHYLLINE (THEOPHYLLINE) [Suspect]
     Active Substance: THEOPHYLLINE
     Route: 048
  6. DURAGESIC [Suspect]
     Active Substance: FENTANYL
     Dosage: EVERY 72 HOURS
     Route: 062

REACTIONS (7)
  - Fatigue [None]
  - Fall [None]
  - Hypokalaemia [None]
  - Renal failure [None]
  - Hyponatraemia [None]
  - General physical health deterioration [None]
  - Decreased appetite [None]

NARRATIVE: CASE EVENT DATE: 20140228
